FAERS Safety Report 16701576 (Version 2)
Quarter: 2019Q3

REPORT INFORMATION
  Report Type: Spontaneous
  Country: DE (occurrence: DE)
  Receive Date: 20190814
  Receipt Date: 20190826
  Transmission Date: 20191004
  Serious: Yes (Hospitalization)
  Sender: FDA-Public Use
  Company Number: DE-PFIZER INC-2019342312

PATIENT
  Age: 71 Year
  Sex: Female

DRUGS (10)
  1. LORAZEPAM DURA [Suspect]
     Active Substance: LORAZEPAM
     Dosage: 1 MG, 1X/DAY (0-0-0-1)
  2. ACETYLSALICYLIC ACID [Concomitant]
     Active Substance: ASPIRIN
     Dosage: 100 MG, 0-1-0-0
  3. SULPIRID [Suspect]
     Active Substance: SULPIRIDE
     Dosage: 50 MG, 2X/DAY (2-0-2-0)
  4. MIRTAZAPINE. [Suspect]
     Active Substance: MIRTAZAPINE
     Dosage: 30 MG, 1X/DAY (0-0-1-0)
  5. TAVOR (LORAZEPAM) [Suspect]
     Active Substance: LORAZEPAM
     Dosage: 2 MG, UNK
  6. LEVETIRACETAM. [Suspect]
     Active Substance: LEVETIRACETAM
     Dosage: 500 MG, 2X/DAY (1-0-1-0)
  7. PREGABALIN. [Suspect]
     Active Substance: PREGABALIN
     Dosage: 75 MG, 2X/DAY (2-0-2-0)
  8. VIGANTOLETTEN [Concomitant]
     Active Substance: CHOLECALCIFEROL
     Dosage: 1000 IU, 1-0-0-0
  9. PANTOPRAZOLE [Concomitant]
     Active Substance: PANTOPRAZOLE
     Dosage: 40 MG, 1-0-0-0
  10. METAMIZOLE [Concomitant]
     Active Substance: METAMIZOLE
     Dosage: 500 MG, 0-0-2-2

REACTIONS (4)
  - Dizziness [Unknown]
  - Product prescribing error [Unknown]
  - Fracture [Unknown]
  - Fall [Unknown]
